FAERS Safety Report 9457353 (Version 1)
Quarter: 2013Q3

REPORT INFORMATION
  Report Type: Spontaneous
  Country: US (occurrence: None)
  Receive Date: 20130812
  Receipt Date: 20130812
  Transmission Date: 20140515
  Serious: Yes (Other)
  Sender: FDA-Public Use
  Company Number: US ZYDUS 001758

PATIENT
  Age: 65 Year
  Sex: Female

DRUGS (1)
  1. HYDROXYCHLOROQUINE [Suspect]
     Dosage: 1.0 DAYS

REACTIONS (4)
  - Retinal toxicity [None]
  - Visual acuity reduced [None]
  - Macular pigmentation [None]
  - Retinal degeneration [None]
